FAERS Safety Report 4413122-6 (Version None)
Quarter: 2004Q3

REPORT INFORMATION
  Report Type: 
  Country: None (occurrence: None)
  Receive Date: 20040802
  Receipt Date: 20040621
  Transmission Date: 20050211
  Serious: Yes (Other)
  Sender: FDA-Public Use
  Company Number: PHBS2004BR08299

PATIENT
  Age: 23 Year
  Sex: Female
  Weight: 54 kg

DRUGS (1)
  1. PARLODEL [Suspect]
     Indication: BLOOD PROLACTIN INCREASED
     Dosage: 2.5 MG/DAY
     Route: 048
     Dates: start: 20040601

REACTIONS (4)
  - ABORTION [None]
  - DRUG EXPOSURE DURING PREGNANCY [None]
  - NAUSEA [None]
  - OLIGOMENORRHOEA [None]
